FAERS Safety Report 21435277 (Version 2)
Quarter: 2022Q4

REPORT INFORMATION
  Report Type: Report from Study
  Country: US (occurrence: US)
  Receive Date: 20221010
  Receipt Date: 20221121
  Transmission Date: 20230112
  Serious: No
  Sender: FDA-Public Use
  Company Number: US-ABBVIE-4136190

PATIENT
  Sex: Female

DRUGS (3)
  1. SKYRIZI [Suspect]
     Active Substance: RISANKIZUMAB-RZAA
     Indication: Psoriasis
     Route: 058
  2. PFIZER-BIONTECH COVID-19 VACCINE [Concomitant]
     Active Substance: TOZINAMERAN
     Indication: Product used for unknown indication
     Dosage: ONE IN ONCE?COVID VACCINE
     Route: 030
  3. PFIZER-BIONTECH COVID-19 VACCINE [Concomitant]
     Active Substance: TOZINAMERAN
     Indication: Product used for unknown indication
     Dosage: ONE IN ONCE?COVID BOOSTER DOSE
     Route: 030

REACTIONS (4)
  - Sinusitis [Recovering/Resolving]
  - Pleurisy [Not Recovered/Not Resolved]
  - SARS-CoV-2 test positive [Recovering/Resolving]
  - Pain [Unknown]
